FAERS Safety Report 6717099-X (Version None)
Quarter: 2010Q2

REPORT INFORMATION
  Report Type: 
  Country: None (occurrence: None)
  Receive Date: 20100510
  Receipt Date: 20100510
  Transmission Date: 20101027
  Serious: Yes (Hospitalization)
  Sender: FDA-Public Use
  Company Number: None

PATIENT
  Age: 16 Month
  Sex: Male
  Weight: 10.4327 kg

DRUGS (4)
  1. CHILDREN'S MOTRIN [Suspect]
     Indication: PYREXIA
  2. CHILDREN'S MOTRIN [Suspect]
     Indication: TEETHING
  3. INFANT TYLENOL DYE FREE CHERRY [Suspect]
     Indication: PYREXIA
  4. INFANT TYLENOL DYE FREE CHERRY [Suspect]
     Indication: TEETHING

REACTIONS (3)
  - MALAISE [None]
  - PRODUCT QUALITY ISSUE [None]
  - RASH [None]
